FAERS Safety Report 8198083-9 (Version None)
Quarter: 2012Q1

REPORT INFORMATION
  Report Type: 
  Country: None (occurrence: None)
  Receive Date: 20120309
  Receipt Date: 20120117
  Transmission Date: 20120608
  Serious: No
  Sender: FDA-Public Use
  Company Number: US-AMGEN-USASP2012003157

PATIENT
  Age: 64 Year
  Sex: Female

DRUGS (2)
  1. XGEVA [Suspect]
     Indication: BREAST CANCER
     Dosage: UNK UNK, Q6WK
     Dates: start: 20110101
  2. SYNTHROID [Concomitant]
     Dosage: 1 UNK, UNK

REACTIONS (2)
  - ORAL MUCOSAL ERYTHEMA [None]
  - GINGIVAL PAIN [None]
